FAERS Safety Report 7438440-9 (Version None)
Quarter: 2011Q2

REPORT INFORMATION
  Report Type: 
  Country: None (occurrence: None)
  Receive Date: 20110426
  Receipt Date: 20110415
  Transmission Date: 20111010
  Serious: Yes (Other)
  Sender: FDA-Public Use
  Company Number: US-BAXTER-2011BH010620

PATIENT
  Sex: Male

DRUGS (1)
  1. DIANEAL [Suspect]
     Indication: PERITONEAL DIALYSIS
     Route: 033

REACTIONS (4)
  - ABSCESS [None]
  - GENERAL PHYSICAL HEALTH DETERIORATION [None]
  - AZOTAEMIA [None]
  - CATHETER SITE RELATED REACTION [None]
